FAERS Safety Report 6458810-5 (Version None)
Quarter: 2009Q4

REPORT INFORMATION
  Report Type: 
  Country: None (occurrence: None)
  Receive Date: 20091127
  Receipt Date: 20091116
  Transmission Date: 20100525
  Serious: Yes (Other)
  Sender: FDA-Public Use
  Company Number: FR-ROCHE-670180

PATIENT
  Age: 47 Year
  Sex: Female

DRUGS (4)
  1. MYCOPHENOLATE MOFETIL [Suspect]
     Indication: PROPHYLAXIS AGAINST GRAFT VERSUS HOST DISEASE
     Dosage: DOSE: 15 MG/KG, TID
     Route: 048
  2. CYCLOSPORINE [Suspect]
     Indication: PROPHYLAXIS AGAINST GRAFT VERSUS HOST DISEASE
     Route: 048
  3. FLUDARABINE [Concomitant]
     Dosage: 25-50 MG/ME2 FOR 3-5 DAYS
  4. MELPHALAN [Concomitant]

REACTIONS (1)
  - ACUTE GRAFT VERSUS HOST DISEASE [None]
